FAERS Safety Report 14703852 (Version 1)
Quarter: 2018Q2

REPORT INFORMATION
  Report Type: Spontaneous
  Country: US (occurrence: US)
  Receive Date: 20180402
  Receipt Date: 20180402
  Transmission Date: 20180711
  Serious: No
  Sender: FDA-Public Use
  Company Number: US-VERTEX PHARMACEUTICALS-2018-002179

PATIENT
  Sex: Male

DRUGS (12)
  1. ORKAMBI [Suspect]
     Active Substance: IVACAFTOR\LUMACAFTOR
     Indication: CYSTIC FIBROSIS
     Dosage: 200/125MG TABLETS, BID
     Route: 048
     Dates: start: 2015
  2. FLUTICASONE. [Concomitant]
     Active Substance: FLUTICASONE
  3. MEPHYTON [Concomitant]
     Active Substance: PHYTONADIONE
  4. LANTUS [Concomitant]
     Active Substance: INSULIN GLARGINE
  5. MOMETASONE [Concomitant]
     Active Substance: MOMETASONE
  6. CREON [Concomitant]
     Active Substance: PANCRELIPASE AMYLASE\PANCRELIPASE LIPASE\PANCRELIPASE PROTEASE
  7. OMEPRAZOLE. [Concomitant]
     Active Substance: OMEPRAZOLE
  8. URSODIOL. [Concomitant]
     Active Substance: URSODIOL
  9. PROAIR HFA [Concomitant]
     Active Substance: ALBUTEROL SULFATE
  10. RANITIDINE. [Concomitant]
     Active Substance: RANITIDINE
  11. PREDNISONE. [Concomitant]
     Active Substance: PREDNISONE
  12. PULMOZYME [Concomitant]
     Active Substance: DORNASE ALFA

REACTIONS (3)
  - Dyspnoea [Unknown]
  - Pyrexia [Unknown]
  - Liver scan abnormal [Unknown]

NARRATIVE: CASE EVENT DATE: 2018
